FAERS Safety Report 22600206 (Version 1)
Quarter: 2023Q2

REPORT INFORMATION
  Report Type: Spontaneous
  Country: RU (occurrence: RU)
  Receive Date: 20230614
  Receipt Date: 20230614
  Transmission Date: 20230722
  Serious: Yes (Other)
  Sender: FDA-Public Use
  Company Number: RU-BAYER-2023A079899

PATIENT
  Sex: Female

DRUGS (1)
  1. MIRENA [Suspect]
     Active Substance: LEVONORGESTREL
     Dosage: 20?G/DAY
     Route: 015
     Dates: start: 2022

REACTIONS (1)
  - Cataract [None]
